FAERS Safety Report 24735242 (Version 1)
Quarter: 2024Q4

REPORT INFORMATION
  Report Type: Spontaneous
  Country: IT (occurrence: IT)
  Receive Date: 20241215
  Receipt Date: 20241215
  Transmission Date: 20250115
  Serious: Yes (Disabling, Other)
  Sender: Teyro Labs
  Company Number: IT-TEYRO-2024-TY-000898

PATIENT
  Age: 69 Year
  Sex: Female

DRUGS (6)
  1. GEMCITABINE [Suspect]
     Active Substance: GEMCITABINE
     Indication: Ductal adenocarcinoma of pancreas
     Dosage: UNK
     Route: 065
  2. GEMCITABINE [Suspect]
     Active Substance: GEMCITABINE
     Indication: Ductal adenocarcinoma of pancreas
  3. PACLITAXEL [Suspect]
     Active Substance: PACLITAXEL
     Indication: Ductal adenocarcinoma of pancreas
     Dosage: UNK
     Route: 065
  4. PACLITAXEL [Suspect]
     Active Substance: PACLITAXEL
     Indication: Ductal adenocarcinoma of pancreas
  5. IVOSPEMIN [Suspect]
     Active Substance: IVOSPEMIN
     Indication: Ductal adenocarcinoma of pancreas
     Dosage: UNK
     Route: 065
  6. IVOSPEMIN [Suspect]
     Active Substance: IVOSPEMIN
     Indication: Ductal adenocarcinoma of pancreas
     Dosage: UNK
     Route: 065

REACTIONS (3)
  - Retinal toxicity [Unknown]
  - Retinal depigmentation [Unknown]
  - Neoplasm progression [Unknown]
